FAERS Safety Report 16409541 (Version 1)
Quarter: 2019Q2

REPORT INFORMATION
  Report Type: Spontaneous
  Country: CA (occurrence: CA)
  Receive Date: 20190610
  Receipt Date: 20190610
  Transmission Date: 20190711
  Serious: Yes (Disabling)
  Sender: FDA-Public Use
  Company Number: CA-PFIZER INC-2019245256

PATIENT
  Age: 60 Year
  Sex: Female
  Weight: 56.69 kg

DRUGS (1)
  1. EFFEXOR XR [Suspect]
     Active Substance: VENLAFAXINE HYDROCHLORIDE
     Indication: DEPRESSION
     Dosage: 75 MG, 1X/DAY
     Route: 048

REACTIONS (12)
  - Anxiety [Recovering/Resolving]
  - Withdrawal syndrome [Recovering/Resolving]
  - Affect lability [Recovering/Resolving]
  - Derealisation [Recovering/Resolving]
  - Vision blurred [Recovering/Resolving]
  - Acute stress disorder [Recovering/Resolving]
  - Depersonalisation/derealisation disorder [Recovering/Resolving]
  - Impaired work ability [Recovering/Resolving]
  - Vertigo [Recovering/Resolving]
  - Alopecia [Recovering/Resolving]
  - Muscular weakness [Recovering/Resolving]
  - Paranoia [Recovering/Resolving]
